FAERS Safety Report 6158626-3 (Version None)
Quarter: 2009Q2

REPORT INFORMATION
  Report Type: 
  Country: None (occurrence: None)
  Receive Date: 20090417
  Receipt Date: 20090415
  Transmission Date: 20091009
  Serious: Yes (Life-Threatening)
  Sender: FDA-Public Use
  Company Number: ES-BAYER-200918315GPV

PATIENT
  Age: 33 Year
  Sex: Female

DRUGS (1)
  1. ASPIRIN [Suspect]
     Indication: HEADACHE
     Dosage: TOTAL DAILY DOSE: 500 MG  UNIT DOSE: 500 MG
     Route: 048
     Dates: start: 20081022, end: 20081023

REACTIONS (2)
  - GASTROINTESTINAL HAEMORRHAGE [None]
  - HAEMODYNAMIC INSTABILITY [None]
